FAERS Safety Report 6221207-7 (Version None)
Quarter: 2009Q2

REPORT INFORMATION
  Report Type: 
  Country: None (occurrence: None)
  Receive Date: 20090610
  Receipt Date: 20090527
  Transmission Date: 20091009
  Serious: Yes (Other)
  Sender: FDA-Public Use
  Company Number: US-ELI_LILLY_AND_COMPANY-US200901005503

PATIENT
  Sex: Female

DRUGS (1)
  1. STRATTERA [Suspect]
     Dosage: 18 MG, UNKNOWN
     Route: 065
     Dates: start: 20061201, end: 20080114

REACTIONS (1)
  - ELECTROCARDIOGRAM QT PROLONGED [None]
